FAERS Safety Report 25936440 (Version 2)
Quarter: 2025Q4

REPORT INFORMATION
  Report Type: Spontaneous
  Country: JP (occurrence: JP)
  Receive Date: 20251017
  Receipt Date: 20251211
  Transmission Date: 20260117
  Serious: Yes (Hospitalization)
  Sender: OTSUKA
  Company Number: JP-MMM-Otsuka-0PEZ3G7D

PATIENT
  Age: 4 Year
  Sex: Male
  Weight: 17.8 kg

DRUGS (1)
  1. REXULTI [Suspect]
     Active Substance: BREXPIPRAZOLE
     Indication: Product used for unknown indication
     Dosage: 5 MG, SINGLE
     Dates: start: 20251006, end: 20251006

REACTIONS (7)
  - Toxicity to various agents [Recovered/Resolved]
  - Altered state of consciousness [Recovered/Resolved]
  - White blood cell count increased [Unknown]
  - Eosinophilia [Unknown]
  - Hypersomnia [Unknown]
  - Accidental overdose [Unknown]
  - Accidental exposure to product by child [Unknown]

NARRATIVE: CASE EVENT DATE: 20251006
